FAERS Safety Report 5975493-9 (Version None)
Quarter: 2008Q4

REPORT INFORMATION
  Report Type: 
  Country: None (occurrence: None)
  Receive Date: 20081202
  Receipt Date: 20081123
  Transmission Date: 20090506
  Serious: Yes (Hospitalization)
  Sender: FDA-Public Use
  Company Number: US-ROCHE-597167

PATIENT
  Sex: Male

DRUGS (2)
  1. PEG-INTERFERON A-2A (RO 25-8310) [Suspect]
     Dosage: FORM REPORTED AS: PREFILLED SYRINGE.
     Route: 065
     Dates: start: 20081017, end: 20081107
  2. RIBAVIRIN [Suspect]
     Dosage: FORM REPORTED AS: PILL
     Route: 065
     Dates: start: 20081017, end: 20081110

REACTIONS (5)
  - CHEST DISCOMFORT [None]
  - DYSPNOEA [None]
  - HALLUCINATION [None]
  - PAIN IN JAW [None]
  - PERICARDIAL EFFUSION [None]
